APPROVED DRUG PRODUCT: LAMOTRIGINE
Active Ingredient: LAMOTRIGINE
Strength: 25MG
Dosage Form/Route: TABLET;ORAL
Application: A077783 | Product #001
Applicant: CHARTWELL MOLECULAR HOLDINGS LLC
Approved: Nov 1, 2010 | RLD: No | RS: No | Type: DISCN